FAERS Safety Report 5219646-6 (Version None)
Quarter: 2006Q4

REPORT INFORMATION
  Report Type: 
  Country: None (occurrence: None)
  Receive Date: 20061201
  Receipt Date: 20060705
  Transmission Date: 20070319
  Serious: No
  Sender: FDA-Public Use
  Company Number: 2006PV016958

PATIENT
  Age: 53 Year
  Sex: Male
  Weight: 110.2241 kg

DRUGS (1)
  1. BYETTA [Suspect]
     Indication: DIABETES MELLITUS NON-INSULIN-DEPENDENT
     Dosage: 5 MCG;BID;SC
     Route: 058
     Dates: start: 20060621, end: 20060703

REACTIONS (3)
  - DECREASED APPETITE [None]
  - PURULENT DISCHARGE [None]
  - SKIN REACTION [None]
